FAERS Safety Report 20263724 (Version 1)
Quarter: 2021Q4

REPORT INFORMATION
  Report Type: Spontaneous
  Country: NO (occurrence: NO)
  Receive Date: 20211231
  Receipt Date: 20211231
  Transmission Date: 20220303
  Serious: Yes (Hospitalization)
  Sender: FDA-Public Use
  Company Number: NO-SUN PHARMACEUTICAL INDUSTRIES LTD-2019R1-227906

PATIENT
  Age: 54 Year
  Sex: Male

DRUGS (1)
  1. BOSENTAN [Suspect]
     Active Substance: BOSENTAN
     Indication: Raynaud^s phenomenon
     Dosage: UNK
     Route: 065

REACTIONS (1)
  - Capillary leak syndrome [Recovered/Resolved]
